FAERS Safety Report 7313262-8 (Version None)
Quarter: 2011Q1

REPORT INFORMATION
  Report Type: 
  Country: None (occurrence: None)
  Receive Date: 20110215
  Receipt Date: 20110215
  Transmission Date: 20110831
  Serious: Yes (Hospitalization)
  Sender: FDA-Public Use
  Company Number: None

PATIENT
  Sex: Female
  Weight: 34.5 kg

DRUGS (6)
  1. MERCAPTOPURINE [Suspect]
     Dosage: 950 MG
     Dates: end: 20110203
  2. METHOTREXATE [Suspect]
     Dosage: 45 MG
     Dates: end: 20110207
  3. PEG-L ASPARAGINASE (PEGASPARGASE, ONCOSPAR) [Suspect]
     Dosage: 131 MG
     Dates: end: 20110207
  4. CYTARABINE [Suspect]
     Dosage: 696 MG
     Dates: end: 20110131
  5. VINCRISTINE SULFATE [Suspect]
     Dosage: 1.7 MG
     Dates: end: 20110207
  6. CYCLOPHOSPHAMIDE [Suspect]
     Dosage: 1160 MG

REACTIONS (2)
  - HYPERSENSITIVITY [None]
  - HYPERGLYCAEMIA [None]
